FAERS Safety Report 17639273 (Version 1)
Quarter: 2020Q2

REPORT INFORMATION
  Report Type: Spontaneous
  Country: TR (occurrence: TR)
  Receive Date: 20200407
  Receipt Date: 20200407
  Transmission Date: 20200713
  Serious: Yes (Other)
  Sender: FDA-Public Use
  Company Number: TR-SUN PHARMACEUTICAL INDUSTRIES LTD-2020R1-242552

PATIENT
  Age: 7 Month
  Sex: Male

DRUGS (1)
  1. SALBUTAMOL [Suspect]
     Active Substance: ALBUTEROL
     Indication: BRONCHIOLITIS
     Dosage: 0.2 MG/KG/DOSE, SIX TIMES A DAY
     Route: 065

REACTIONS (1)
  - Disease recurrence [Unknown]
